FAERS Safety Report 8305974-4 (Version None)
Quarter: 2012Q2

REPORT INFORMATION
  Report Type: 
  Country: None (occurrence: None)
  Receive Date: 20120423
  Receipt Date: 20120419
  Transmission Date: 20120825
  Serious: Yes (Hospitalization)
  Sender: FDA-Public Use
  Company Number: DE-ROCHE-1054257

PATIENT
  Sex: Female
  Weight: 48 kg

DRUGS (4)
  1. LEUCOVORIN CALCIUM [Concomitant]
     Indication: COLORECTAL CANCER METASTATIC
     Route: 042
     Dates: start: 20110719, end: 20111102
  2. IRINOTECAN HCL [Concomitant]
     Indication: COLORECTAL CANCER METASTATIC
     Route: 042
     Dates: start: 20110719, end: 20111102
  3. FLUOROURACIL [Concomitant]
     Indication: COLORECTAL CANCER METASTATIC
     Route: 042
     Dates: start: 20110719, end: 20111102
  4. AVASTIN [Suspect]
     Indication: COLORECTAL CANCER METASTATIC
     Dosage: LAST DOSE PRIOR TO SAE 2/NOV/2011
     Route: 042
     Dates: start: 20110719, end: 20111102

REACTIONS (2)
  - FEMALE GENITAL TRACT FISTULA [None]
  - FAECAL INCONTINENCE [None]
